FAERS Safety Report 21958690 (Version 1)
Quarter: 2023Q1

REPORT INFORMATION
  Report Type: Spontaneous
  Country: US (occurrence: None)
  Receive Date: 20230203
  Receipt Date: 20230203
  Transmission Date: 20230418
  Serious: Yes (Hospitalization)
  Sender: FDA-Public Use
  Company Number: None

PATIENT
  Age: 57 Year
  Sex: Female

DRUGS (1)
  1. GLEEVEC [Suspect]
     Active Substance: IMATINIB MESYLATE
     Indication: Hypereosinophilic syndrome
     Dosage: 300MG DAILY ORAL?
     Route: 048

REACTIONS (2)
  - Pneumonia [None]
  - Nausea [None]

NARRATIVE: CASE EVENT DATE: 20221224
